FAERS Safety Report 15954283 (Version 1)
Quarter: 2019Q1

REPORT INFORMATION
  Report Type: Spontaneous
  Country: GB (occurrence: GB)
  Receive Date: 20190213
  Receipt Date: 20190213
  Transmission Date: 20190417
  Serious: Yes (Other)
  Sender: FDA-Public Use
  Company Number: GB-AUROBINDO-AUR-APL-2019-007361

PATIENT

DRUGS (2)
  1. RIVAROXABAN [Concomitant]
     Active Substance: RIVAROXABAN
     Indication: PRODUCT USED FOR UNKNOWN INDICATION
     Dosage: UNK
     Route: 065
  2. BISOPROLOL [Suspect]
     Active Substance: BISOPROLOL
     Indication: ATRIAL FLUTTER
     Dosage: 1.25 MILLIGRAM
     Route: 048
     Dates: start: 20181126, end: 20181225

REACTIONS (4)
  - Disturbance in attention [Recovering/Resolving]
  - Panic attack [Recovered/Resolved]
  - Lethargy [Recovering/Resolving]
  - Hypopnoea [Recovering/Resolving]
